FAERS Safety Report 9257664 (Version 1)
Quarter: 2013Q2

REPORT INFORMATION
  Report Type: Spontaneous
  Country: US (occurrence: US)
  Receive Date: 20130426
  Receipt Date: 20130426
  Transmission Date: 20140414
  Serious: No
  Sender: FDA-Public Use
  Company Number: US-BAYER-2013-047303

PATIENT
  Age: 23 Year
  Sex: Female

DRUGS (3)
  1. YAZ [Suspect]
     Indication: CONTRACEPTION
     Dosage: UNK
     Route: 048
     Dates: start: 200602
  2. YAZ [Suspect]
     Indication: MENORRHAGIA
  3. ST. JOHNS WORT [Interacting]
     Dosage: UNK
     Dates: start: 201302

REACTIONS (4)
  - Oligomenorrhoea [None]
  - Metrorrhagia [None]
  - Polymenorrhoea [None]
  - Drug interaction [None]
